FAERS Safety Report 21159089 (Version 2)
Quarter: 2023Q1

REPORT INFORMATION
  Report Type: Spontaneous
  Country: US (occurrence: US)
  Receive Date: 20220802
  Receipt Date: 20230206
  Transmission Date: 20230418
  Serious: No
  Sender: FDA-Public Use
  Company Number: US-BRISTOL-MYERS SQUIBB COMPANY-2022-079073

PATIENT
  Age: 74 Year
  Sex: Female
  Weight: 69.4 kg

DRUGS (1)
  1. POMALYST [Suspect]
     Active Substance: POMALIDOMIDE
     Indication: Plasma cell myeloma
     Dosage: FREQ: DAILY X 21D ON 7D OFF
     Route: 048
     Dates: start: 20210726

REACTIONS (2)
  - Diarrhoea [Not Recovered/Not Resolved]
  - Tremor [Unknown]
